FAERS Safety Report 4385352-3 (Version None)
Quarter: 2004Q2

REPORT INFORMATION
  Report Type: 
  Country: None (occurrence: None)
  Receive Date: 20040628
  Receipt Date: 20040618
  Transmission Date: 20050107
  Serious: Yes (Other)
  Sender: FDA-Public Use
  Company Number: PHEH2004US06681

PATIENT
  Age: 79 Year
  Sex: Female

DRUGS (2)
  1. GENTEAL GEL (NVO) [Suspect]
     Indication: KERATOCONJUNCTIVITIS SICCA
     Dosage: UNK GTT, QHS
     Dates: end: 20040617
  2. GENTEAL MILD LUBRICANT EYE DROPS (NVO) [Suspect]
     Indication: KERATOCONJUNCTIVITIS SICCA
     Dosage: UNK GTT, UNK
     Dates: end: 20040617

REACTIONS (2)
  - CATARACT [None]
  - ERYTHEMA [None]
